FAERS Safety Report 9869605 (Version 3)
Quarter: 2014Q2

REPORT INFORMATION
  Report Type: Spontaneous
  Country: DK (occurrence: DK)
  Receive Date: 20140205
  Receipt Date: 20140401
  Transmission Date: 20141212
  Serious: Yes (Death, Hospitalization)
  Sender: FDA-Public Use
  Company Number: DK-SANOFI-AVENTIS-2012SA031735

PATIENT
  Age: 74 Year
  Sex: Male
  Weight: 92 kg

DRUGS (9)
  1. JEVTANA [Suspect]
     Indication: PROSTATE CANCER METASTATIC
     Dosage: FORM OF THE DRUG WAS MENTIONED AS 230
     Route: 042
     Dates: start: 20120411
  2. SIMVASTATIN [Concomitant]
  3. AMLODIPINE [Concomitant]
  4. HJERTEMAGNYL [Concomitant]
  5. TRADOLAN [Concomitant]
  6. SELO-ZOK [Concomitant]
  7. CARDOPAX [Concomitant]
  8. ZOLADEX [Concomitant]
  9. CALCIUM [Concomitant]

REACTIONS (7)
  - Organ failure [Not Recovered/Not Resolved]
  - Subileus [Unknown]
  - Urinary tract infection [Unknown]
  - Febrile neutropenia [Fatal]
  - Accidental overdose [Fatal]
  - Drug dispensing error [Unknown]
  - Sepsis [Fatal]
